FAERS Safety Report 16798358 (Version 2)
Quarter: 2019Q3

REPORT INFORMATION
  Report Type: Spontaneous
  Country: CN (occurrence: CN)
  Receive Date: 20190912
  Receipt Date: 20190919
  Transmission Date: 20191005
  Serious: Yes (Other)
  Sender: FDA-Public Use
  Company Number: CN-ASTRAZENECA-2019SF27865

PATIENT
  Age: 65 Year
  Sex: Female

DRUGS (2)
  1. IRESSA [Suspect]
     Active Substance: GEFITINIB
     Indication: NON-SMALL CELL LUNG CANCER
     Route: 048
  2. OSIMERTINIB. [Concomitant]
     Active Substance: OSIMERTINIB
     Dosage: FOR 2-3 MONTHS

REACTIONS (2)
  - Malignant neoplasm progression [Unknown]
  - Drug resistance [Unknown]
